FAERS Safety Report 7214681-0 (Version None)
Quarter: 2011Q1

REPORT INFORMATION
  Report Type: 
  Country: None (occurrence: None)
  Receive Date: 20110104
  Receipt Date: 20110104
  Transmission Date: 20110831
  Serious: Yes (Hospitalization)
  Sender: FDA-Public Use
  Company Number: None

PATIENT
  Age: 69 Year
  Sex: Female
  Weight: 81.1939 kg

DRUGS (1)
  1. BONIVA [Suspect]
     Indication: OSTEOPENIA
     Dosage: 150 MG MONTHLY PO
     Route: 048
     Dates: start: 20030101, end: 20050301

REACTIONS (5)
  - OSTEONECROSIS [None]
  - ULTRASOUND UTERUS ABNORMAL [None]
  - BACK PAIN [None]
  - RIB FRACTURE [None]
  - FEMUR FRACTURE [None]
